FAERS Safety Report 25838288 (Version 1)
Quarter: 2025Q3

REPORT INFORMATION
  Report Type: Spontaneous
  Country: US (occurrence: US)
  Receive Date: 20250923
  Receipt Date: 20250923
  Transmission Date: 20251021
  Serious: No
  Sender: BOEHRINGER INGELHEIM
  Company Number: US-Komodo Health-a23aa00000A6mNZAAZ

PATIENT
  Sex: Male
  Weight: 97 kg

DRUGS (2)
  1. HERNEXEOS [Suspect]
     Active Substance: ZONGERTINIB
     Indication: HER2 mutant non-small cell lung cancer
  2. HERNEXEOS [Suspect]
     Active Substance: ZONGERTINIB
     Indication: Metastases to central nervous system

REACTIONS (1)
  - Prescribed overdose [Unknown]
